FAERS Safety Report 17902879 (Version 3)
Quarter: 2020Q2

REPORT INFORMATION
  Report Type: Spontaneous
  Country: PL (occurrence: PL)
  Receive Date: 20200616
  Receipt Date: 20200630
  Transmission Date: 20200714
  Serious: Yes (Hospitalization, Other)
  Sender: FDA-Public Use
  Company Number: PL-PFIZER INC-2020230492

PATIENT
  Age: 42 Year
  Sex: Female

DRUGS (12)
  1. MORPHINE [Interacting]
     Active Substance: MORPHINE
     Dosage: 80 MG
  2. OLANZAPINE. [Interacting]
     Active Substance: OLANZAPINE
     Indication: VOMITING
     Dosage: 5 MG, DAILY
  3. MORPHINE [Interacting]
     Active Substance: MORPHINE
     Dosage: 80 MG, 2X/DAY
  4. OLANZAPINE. [Interacting]
     Active Substance: OLANZAPINE
     Indication: ANTIEMETIC SUPPORTIVE CARE
     Dosage: 10 MG, DAILY
  5. AMLODIPINE BESILATE [Suspect]
     Active Substance: AMLODIPINE BESYLATE
     Indication: HYPERTENSION
     Dosage: 10 MG
  6. QUETIAPINE. [Interacting]
     Active Substance: QUETIAPINE
     Dosage: 25 MG, 1X/DAY (AT NIGHT)
  7. PERINDOPRIL [Interacting]
     Active Substance: PERINDOPRIL
     Indication: HYPERTENSION
     Dosage: 10 MG
  8. PREGABALIN. [Interacting]
     Active Substance: PREGABALIN
     Dosage: 300 MG, DAILY
  9. DULOXETINE. [Interacting]
     Active Substance: DULOXETINE
     Dosage: 90 MG
  10. CIPROFLOXACIN. [Interacting]
     Active Substance: CIPROFLOXACIN
     Dosage: 500 MG, 1X/DAY
     Route: 048
  11. PERINDOPRIL [Interacting]
     Active Substance: PERINDOPRIL
     Dosage: UNK (A COMBINATION OF PERINDOPRIL 10 MG AND AMLODIPINE 10 MG)
  12. CIPROFLOXACIN. [Interacting]
     Active Substance: CIPROFLOXACIN
     Dosage: 1000 MG (2 X 500 MG P.O.)
     Route: 048

REACTIONS (11)
  - Nausea [Recovering/Resolving]
  - Dysuria [Unknown]
  - Urinary retention [Unknown]
  - Vomiting [Unknown]
  - Thirst [Unknown]
  - Tinnitus [Unknown]
  - Toxicity to various agents [Unknown]
  - Drug interaction [Unknown]
  - Paraesthesia [Unknown]
  - Anxiety [Unknown]
  - Drug level increased [Unknown]
